FAERS Safety Report 10673992 (Version 2)
Quarter: 2015Q1

REPORT INFORMATION
  Report Type: Spontaneous
  Country: AU (occurrence: AU)
  Receive Date: 20141224
  Receipt Date: 20150227
  Transmission Date: 20150720
  Serious: Yes (Hospitalization)
  Sender: FDA-Public Use
  Company Number: AU-BRACCO-000988

PATIENT
  Age: 46 Year
  Sex: Female

DRUGS (2)
  1. ISOVUE 300 [Suspect]
     Active Substance: IOPAMIDOL
     Indication: SPINAL MYELOGRAM
     Route: 037
     Dates: start: 20141217, end: 20141217
  2. LUVOX [Concomitant]
     Active Substance: FLUVOXAMINE MALEATE

REACTIONS (2)
  - Encephalomyelitis [None]
  - Meningitis chemical [Recovered/Resolved]

NARRATIVE: CASE EVENT DATE: 20141218
